FAERS Safety Report 11238572 (Version 1)
Quarter: 2015Q3

REPORT INFORMATION
  Report Type: Spontaneous
  Country: GB (occurrence: GB)
  Receive Date: 20150706
  Receipt Date: 20150706
  Transmission Date: 20151125
  Serious: Yes (Other)
  Sender: FDA-Public Use
  Company Number: GB-AMGEN-GBRSP2015064887

PATIENT
  Age: 57 Year
  Sex: Female
  Weight: 45 kg

DRUGS (1)
  1. PROLIA [Suspect]
     Active Substance: DENOSUMAB
     Indication: OSTEOPOROSIS PROPHYLAXIS
     Dosage: UNK
     Route: 051
     Dates: start: 20140905

REACTIONS (4)
  - Stomatitis [Not Recovered/Not Resolved]
  - Toothache [Not Recovered/Not Resolved]
  - Pain in extremity [Not Recovered/Not Resolved]
  - Insomnia [Recovered/Resolved]
